FAERS Safety Report 7294689-X (Version None)
Quarter: 2011Q1

REPORT INFORMATION
  Report Type: 
  Country: None (occurrence: None)
  Receive Date: 20110216
  Receipt Date: 20110209
  Transmission Date: 20110831
  Serious: Yes (Other)
  Sender: FDA-Public Use
  Company Number: BR-PFIZER INC-2011029143

PATIENT
  Age: 71 Year
  Sex: Male

DRUGS (1)
  1. VIAGRA [Suspect]
     Dosage: 50 MG, EVERY 3 DAYS
     Route: 048
     Dates: start: 20080101

REACTIONS (2)
  - EYE PAIN [None]
  - VISUAL IMPAIRMENT [None]
